FAERS Safety Report 4596326-1 (Version None)
Quarter: 2005Q1

REPORT INFORMATION
  Report Type: 
  Country: None (occurrence: None)
  Receive Date: 20050228
  Receipt Date: 20050215
  Transmission Date: 20050727
  Serious: Yes (Other)
  Sender: FDA-Public Use
  Company Number: TUK2005A00016

PATIENT
  Age: 48 Year
  Sex: Female

DRUGS (6)
  1. ACTOS [Suspect]
     Indication: DIABETES MELLITUS NON-INSULIN-DEPENDENT
     Dosage: 30 MG ORAL
     Route: 048
     Dates: start: 20030604, end: 20041207
  2. ATORVASTATIN (ATORVASTATIN) [Concomitant]
  3. CO-PROXAMOL (APOREX) [Concomitant]
  4. GLICLAZIDE (GLICLAZIDE) [Concomitant]
  5. ORLISTAT (ORLISTAT) [Concomitant]
  6. METFORMIN HCL [Concomitant]

REACTIONS (2)
  - ARTHRALGIA [None]
  - FLUID RETENTION [None]
